FAERS Safety Report 4470993-5 (Version None)
Quarter: 2004Q4

REPORT INFORMATION
  Report Type: 
  Country: None (occurrence: None)
  Receive Date: 20041011
  Receipt Date: 20041007
  Transmission Date: 20050328
  Serious: Yes (Hospitalization)
  Sender: FDA-Public Use
  Company Number: DE-MERCK-0410DEU00209

PATIENT
  Age: 78 Year
  Sex: Female
  Weight: 70 kg

DRUGS (4)
  1. [THERAPY UNSPECIFIED] [Concomitant]
     Indication: HYPERTENSION
     Route: 048
     Dates: start: 19940101, end: 20040101
  2. DIPYRONE [Concomitant]
     Indication: BACK PAIN
     Route: 048
     Dates: end: 20040101
  3. VIOXX [Suspect]
     Indication: BACK PAIN
     Route: 048
     Dates: end: 20040101
  4. TRAMADOL HYDROCHLORIDE [Concomitant]
     Indication: BACK PAIN
     Route: 048
     Dates: end: 20040101

REACTIONS (2)
  - ADVERSE EVENT [None]
  - TRANSIENT ISCHAEMIC ATTACK [None]
